FAERS Safety Report 8036441-3 (Version None)
Quarter: 2012Q1

REPORT INFORMATION
  Report Type: 
  Country: None (occurrence: None)
  Receive Date: 20120106
  Receipt Date: 20111227
  Transmission Date: 20120608
  Serious: Yes (Hospitalization, Other)
  Sender: FDA-Public Use
  Company Number: KAD201112-000163

PATIENT
  Age: 60 Year
  Sex: Female

DRUGS (3)
  1. METHYLPREDNISOLONE [Suspect]
     Dosage: 16 MG, 2 TABLETS, 3 TIMES A DAY
  2. RIBAVIRIN [Suspect]
     Indication: HEPATITIS C
     Dates: start: 20070101, end: 20070701
  3. PEGINTERFERON ALFA-2A [Suspect]
     Indication: HEPATITIS C
     Dates: start: 20070101, end: 20070701

REACTIONS (16)
  - PLEURAL EFFUSION [None]
  - ATELECTASIS [None]
  - HEPATIC ENCEPHALOPATHY [None]
  - HEPATIC FIBROSIS [None]
  - BRONCHOPULMONARY ASPERGILLOSIS [None]
  - HEPATIC FUNCTION ABNORMAL [None]
  - NEUTROPHIL PERCENTAGE INCREASED [None]
  - HYPOXIA [None]
  - HYPOTHYROIDISM [None]
  - RESPIRATORY ALKALOSIS [None]
  - ANAEMIA HAEMOLYTIC AUTOIMMUNE [None]
  - ASCITES [None]
  - BLOOD ALBUMIN DECREASED [None]
  - INFECTION IN AN IMMUNOCOMPROMISED HOST [None]
  - DIABETES MELLITUS INADEQUATE CONTROL [None]
  - NO THERAPEUTIC RESPONSE [None]
